FAERS Safety Report 12100282 (Version 1)
Quarter: 2016Q1

REPORT INFORMATION
  Report Type: Spontaneous
  Country: US (occurrence: US)
  Receive Date: 20160222
  Receipt Date: 20160222
  Transmission Date: 20160526
  Serious: No
  Sender: FDA-Public Use
  Company Number: US-JNJFOC-20160203476

PATIENT
  Age: 46 Year
  Sex: Female
  Weight: 78.02 kg

DRUGS (2)
  1. INVEGA SUSTENNA [Suspect]
     Active Substance: PALIPERIDONE PALMITATE
     Indication: DRUG THERAPY
     Route: 030
     Dates: start: 2015, end: 201512
  2. INVEGA SUSTENNA [Suspect]
     Active Substance: PALIPERIDONE PALMITATE
     Indication: DRUG THERAPY
     Route: 030
     Dates: start: 201512

REACTIONS (2)
  - Inappropriate schedule of drug administration [Unknown]
  - Affective disorder [Not Recovered/Not Resolved]

NARRATIVE: CASE EVENT DATE: 201512
